FAERS Safety Report 14508741 (Version 8)
Quarter: 2019Q3

REPORT INFORMATION
  Report Type: Report from Study
  Country: None (occurrence: JP)
  Receive Date: 20180209
  Receipt Date: 20190830
  Transmission Date: 20191004
  Serious: No
  Sender: FDA-Public Use
  Company Number: JP-ABBVIE-18K-087-2251856-00

PATIENT
  Age: 71 Year
  Sex: Female
  Weight: 39 kg

DRUGS (5)
  1. CARBIDOPA HYDRATE- LEVODOPA MIXT [Concomitant]
     Indication: PARKINSON^S DISEASE
     Route: 048
  2. DUODOPA [Suspect]
     Active Substance: CARBIDOPA\LEVODOPA
     Indication: PARKINSON^S DISEASE
     Dosage: MD: 8.3 ML, CD: 2.1 ML/HR ? 16 HRS, ED:1 ML/UNIT ? 2
     Route: 050
     Dates: start: 20171124, end: 20180525
  3. DUODOPA [Suspect]
     Active Substance: CARBIDOPA\LEVODOPA
     Dosage: MD: 8.3 ML, CD: 2.7 ML/HR ? 14 HRS, ED:1.0 ML/UNIT ? 2 TIMES
     Route: 050
     Dates: start: 20181027
  4. CARBIDOPA HYDRATE- LEVODOPA MIXT [Concomitant]
     Route: 048
     Dates: start: 20180124
  5. DUODOPA [Suspect]
     Active Substance: CARBIDOPA\LEVODOPA
     Dosage: MD: 8.3 ML?CD: 2.5 ML/HR ? 14 HRS?ED: 1.0 ML/UNIT ? 2 TIMES
     Route: 050
     Dates: start: 20180526, end: 20181026

REACTIONS (2)
  - Asthenia [Unknown]
  - On and off phenomenon [Unknown]

NARRATIVE: CASE EVENT DATE: 20180316
